FAERS Safety Report 10014515 (Version 2)
Quarter: 2014Q2

REPORT INFORMATION
  Report Type: Spontaneous
  Country: US (occurrence: US)
  Receive Date: 20140317
  Receipt Date: 20140417
  Transmission Date: 20141212
  Serious: No
  Sender: FDA-Public Use
  Company Number: US-009507513-1403USA003614

PATIENT
  Age: 72 Year
  Sex: Female
  Weight: 75.28 kg

DRUGS (9)
  1. OXYTROL FOR WOMEN [Suspect]
     Indication: HYPERTONIC BLADDER
     Dosage: UNK, UNKNOWN
     Route: 062
     Dates: start: 20140216, end: 20140306
  2. OXYTROL FOR WOMEN [Suspect]
     Dosage: UNK, UNKNOWN
     Route: 062
     Dates: start: 20140216, end: 20140306
  3. PREDNISONE [Concomitant]
     Indication: ASTHMA
     Dosage: UNK, UNKNOWN
  4. DULERA [Concomitant]
     Indication: ASTHMA
     Dosage: UNK, UNKNOWN
  5. ERYTHROMYCIN [Concomitant]
     Indication: ASTHMA
     Dosage: UNK, UNKNOWN
  6. ERYTHROMYCIN [Concomitant]
     Indication: NASOPHARYNGITIS
  7. CORTISONE [Concomitant]
     Indication: MUSCULOSKELETAL DISCOMFORT
     Dosage: UNK, UNKNOWN
  8. LOSARTAN POTASSIUM [Concomitant]
     Indication: HYPERTENSION
     Dosage: UNK, UNKNOWN
  9. LIPITOR [Concomitant]
     Indication: BLOOD CHOLESTEROL INCREASED
     Dosage: UNK, UNKNOWN

REACTIONS (2)
  - Pruritus [Recovered/Resolved]
  - Application site rash [Recovering/Resolving]
